FAERS Safety Report 20380751 (Version 2)
Quarter: 2022Q1

REPORT INFORMATION
  Report Type: Spontaneous
  Country: GB (occurrence: GB)
  Receive Date: 20220127
  Receipt Date: 20220317
  Transmission Date: 20220423
  Serious: Yes (Other)
  Sender: FDA-Public Use
  Company Number: GB-MHRA-EYC 00271115

PATIENT
  Age: 31 Year
  Sex: Female
  Weight: 67.58 kg

DRUGS (6)
  1. CODEINE [Suspect]
     Active Substance: CODEINE
     Indication: Ill-defined disorder
     Dosage: 30MG, UNK
     Route: 048
     Dates: start: 20220103
  2. DESOGESTREL [Concomitant]
     Active Substance: DESOGESTREL
     Indication: Ill-defined disorder
     Dosage: UNK
     Route: 065
  3. HYDROXYCHLOROQUINE SULFATE [Concomitant]
     Active Substance: HYDROXYCHLOROQUINE SULFATE
     Indication: Ill-defined disorder
     Dosage: UNK
     Route: 065
  4. IBUPROFEN [Concomitant]
     Active Substance: IBUPROFEN
     Indication: Ill-defined disorder
     Dosage: UNK
     Route: 065
  5. ACETAMINOPHEN [Concomitant]
     Active Substance: ACETAMINOPHEN
     Indication: Ill-defined disorder
     Dosage: UNK
     Route: 065
  6. SERTRALINE HYDROCHLORIDE [Concomitant]
     Active Substance: SERTRALINE HYDROCHLORIDE
     Indication: Ill-defined disorder
     Dosage: UNK
     Route: 065

REACTIONS (1)
  - Insomnia [Not Recovered/Not Resolved]

NARRATIVE: CASE EVENT DATE: 20220103
